FAERS Safety Report 15088732 (Version 2)
Quarter: 2018Q3

REPORT INFORMATION
  Report Type: Spontaneous
  Country: US (occurrence: US)
  Receive Date: 20180629
  Receipt Date: 20180912
  Transmission Date: 20181010
  Serious: No
  Sender: FDA-Public Use
  Company Number: US-PFIZER INC-2018262075

PATIENT
  Sex: Female

DRUGS (1)
  1. ADVIL [Suspect]
     Active Substance: IBUPROFEN
     Indication: PAIN
     Dosage: 2 DF, DAILY (300 COUNT) (STARTED TAKING THE TABLETS BEFORE THE FIRST CALL IN JUN.)
     Dates: start: 2018, end: 20180627

REACTIONS (4)
  - Intentional product use issue [Recovered/Resolved]
  - Stress [Unknown]
  - Pain [Unknown]
  - Drug ineffective [Not Recovered/Not Resolved]

NARRATIVE: CASE EVENT DATE: 2018
